FAERS Safety Report 4266200-9 (Version None)
Quarter: 2004Q1

REPORT INFORMATION
  Report Type: 
  Country: None (occurrence: None)
  Receive Date: 20040106
  Receipt Date: 20031222
  Transmission Date: 20041129
  Serious: No
  Sender: FDA-Public Use
  Company Number: 2003GB03394

PATIENT
  Age: 49 Year
  Sex: Female
  Weight: 64 kg

DRUGS (3)
  1. CRESTOR [Suspect]
     Indication: HYPERCHOLESTEROLAEMIA
     Dosage: 10 MG DAILY PO
     Route: 048
     Dates: start: 20030924, end: 20031124
  2. ZOPICLONE [Concomitant]
  3. TIBOLONE [Concomitant]

REACTIONS (2)
  - PANIC ATTACK [None]
  - TACHYARRHYTHMIA [None]
